FAERS Safety Report 18586442 (Version 1)
Quarter: 2020Q4

REPORT INFORMATION
  Report Type: Spontaneous
  Country: US (occurrence: US)
  Receive Date: 20201207
  Receipt Date: 20201207
  Transmission Date: 20210114
  Serious: No
  Sender: FDA-Public Use
  Company Number: None

PATIENT
  Age: 64 Year
  Sex: Female
  Weight: 86.4 kg

DRUGS (1)
  1. BAMLANIVIMAB. [Suspect]
     Active Substance: BAMLANIVIMAB
     Indication: COVID-19
     Dosage: ?          OTHER FREQUENCY:ONCE;?
     Route: 041
     Dates: start: 20201129, end: 20201129

REACTIONS (5)
  - Headache [None]
  - Intranasal paraesthesia [None]
  - Toothache [None]
  - Body temperature increased [None]
  - Infusion related reaction [None]

NARRATIVE: CASE EVENT DATE: 20201129
